FAERS Safety Report 8890271 (Version 1)
Quarter: 2012Q4

REPORT INFORMATION
  Report Type: 
  Country: JP (occurrence: JP)
  Receive Date: 20121107
  Receipt Date: 20121107
  Transmission Date: 20130627
  Serious: No
  Sender: FDA-Public Use
  Company Number: JP-ELI_LILLY_AND_COMPANY-JP201107007468

PATIENT
  Sex: Female

DRUGS (13)
  1. ZYPREXA [Suspect]
     Indication: SCHIZOPHRENIA
     Dosage: UNK
     Route: 048
  2. ZYPREXA [Suspect]
     Route: 048
  3. ZYPREXA [Suspect]
     Dosage: 2.5 mg, qd
     Route: 048
  4. ZYPREXA [Suspect]
     Dosage: 5 mg, qd
     Route: 048
  5. ZYPREXA [Suspect]
     Dosage: 2.5 mg, qd
     Route: 048
  6. ZYPREXA [Suspect]
     Dosage: 2.5 mg, qd
     Route: 048
  7. ZYPREXA [Suspect]
     Dosage: 2.5 mg, qd
     Route: 048
  8. ZYPREXA [Suspect]
     Dosage: 10 mg, qd
     Route: 048
  9. ZYPREXA [Suspect]
     Dosage: 7.5 mg, qd
     Route: 048
     Dates: end: 20120924
  10. ZYPREXA [Suspect]
     Dosage: 5 mg, qd
     Route: 048
     Dates: start: 20120925
  11. ZYPREXA [Suspect]
     Indication: SCHIZOPHRENIA
     Dosage: 5 mg, qd
     Route: 048
  12. ZYPREXA [Suspect]
     Dosage: 2.5 mg, qd
     Route: 048
  13. ZYPREXA [Suspect]
     Dosage: UNK
     Route: 048

REACTIONS (18)
  - Urine analysis abnormal [Unknown]
  - Stool analysis abnormal [Unknown]
  - Affect lability [Unknown]
  - Abdominal discomfort [Unknown]
  - Heart sounds abnormal [Unknown]
  - Musculoskeletal chest pain [Not Recovered/Not Resolved]
  - Visual acuity reduced [Unknown]
  - Rhinalgia [Unknown]
  - Arthralgia [Unknown]
  - Agitation [Unknown]
  - Pulse abnormal [Unknown]
  - Anaemia [Unknown]
  - Dizziness postural [Unknown]
  - Malaise [Unknown]
  - Malaise [Unknown]
  - Somnolence [Unknown]
  - Increased appetite [Unknown]
  - Drug ineffective [Unknown]
